FAERS Safety Report 6122174-7 (Version None)
Quarter: 2009Q1

REPORT INFORMATION
  Report Type: 
  Country: None (occurrence: None)
  Receive Date: 20090318
  Receipt Date: 20090313
  Transmission Date: 20090719
  Serious: No
  Sender: FDA-Public Use
  Company Number: US-JNJFOC-20090303221

PATIENT
  Sex: Female
  Weight: 116.12 kg

DRUGS (14)
  1. DURAGESIC-100 [Suspect]
     Indication: PAIN
     Route: 062
  2. DURAGESIC-100 [Suspect]
     Indication: NEUROPATHY PERIPHERAL
     Dosage: 100UG/HR + 75 UG/HR
     Route: 062
  3. CYMBALTA [Concomitant]
     Indication: BIPOLAR I DISORDER
     Route: 048
  4. TOPAMAX [Concomitant]
     Indication: CONVULSION
     Route: 048
  5. ZANTAC [Concomitant]
     Indication: GASTRIC DISORDER
     Route: 048
  6. TEGRETOL [Concomitant]
     Indication: CONVULSION
     Route: 048
  7. NEURONTIN [Concomitant]
     Indication: NEUROPATHY PERIPHERAL
     Route: 048
  8. RESTORIL [Concomitant]
     Indication: SLEEP DISORDER
     Dosage: AT SLEEP
     Route: 048
  9. PERCOCET [Concomitant]
     Indication: PAIN
     Dosage: 7.5/325 MG ONE IN EVERY 4 HOURS AS NEEDED
     Route: 048
  10. ARICEPT [Concomitant]
     Indication: MEMORY IMPAIRMENT
     Route: 048
  11. BACLOFEN [Concomitant]
     Indication: MUSCLE SPASMS
     Route: 048
  12. LISINOPRIL [Concomitant]
     Indication: HYPERTENSION
     Route: 048
  13. HUMALOG [Concomitant]
     Indication: DIABETES MELLITUS
     Dosage: U/SOLUTION/SUBCUTANEOUS INSULIN PUMP
     Route: 058
  14. VITAMIN B-12 [Concomitant]
     Route: 048

REACTIONS (3)
  - DRUG INEFFECTIVE [None]
  - INAPPROPRIATE SCHEDULE OF DRUG ADMINISTRATION [None]
  - URINARY INCONTINENCE [None]
